FAERS Safety Report 4273767-3 (Version None)
Quarter: 2004Q1

REPORT INFORMATION
  Report Type: 
  Country: None (occurrence: None)
  Receive Date: 20040114
  Receipt Date: 20031212
  Transmission Date: 20041129
  Serious: Yes (Life-Threatening, Hospitalization)
  Sender: FDA-Public Use
  Company Number: 6922

PATIENT
  Age: 49 Year
  Sex: Female

DRUGS (9)
  1. GEMTUZUMAB OZOGAMICIN [Suspect]
     Indication: ACUTE PROMYELOCYTIC LEUKAEMIA
  2. CYTARABINE [Suspect]
     Dosage: 1900 MG
     Dates: start: 20031017, end: 20031020
  3. IDARUBICIN HCL [Suspect]
     Dosage: 10 MG
     Dates: start: 20031017, end: 20031020
  4. METHOTREXATE [Suspect]
     Dosage: 12 MG
     Dates: start: 20031017
  5. METHYLPREDNISOLONE [Suspect]
     Dosage: 12 MG
     Dates: start: 20031017
  6. TRETINOIN [Suspect]
     Dosage: 80 MG
     Dates: start: 20031017, end: 20031031
  7. CEFEPIME [Concomitant]
  8. AMIKACIN [Concomitant]
  9. FUROSEMIDE [Concomitant]

REACTIONS (4)
  - HAEMOGLOBIN DECREASED [None]
  - SUBARACHNOID HAEMORRHAGE [None]
  - THROMBOCYTOPENIA [None]
  - WHITE BLOOD CELL COUNT DECREASED [None]
